FAERS Safety Report 23712031 (Version 1)
Quarter: 2024Q2

REPORT INFORMATION
  Report Type: Spontaneous
  Country: US (occurrence: US)
  Receive Date: 20240405
  Receipt Date: 20240405
  Transmission Date: 20240716
  Serious: No
  Sender: FDA-Public Use
  Company Number: US-Eisai-EC-2024-162497

PATIENT
  Age: 66 Year
  Sex: Male

DRUGS (1)
  1. LECANEMAB [Suspect]
     Active Substance: LECANEMAB
     Indication: Product used for unknown indication
     Dosage: DOSE UNKNOWN
     Route: 042
     Dates: start: 2024

REACTIONS (2)
  - Body temperature increased [Recovered/Resolved]
  - Appetite disorder [Unknown]

NARRATIVE: CASE EVENT DATE: 20240101
